FAERS Safety Report 12205144 (Version 4)
Quarter: 2016Q2

REPORT INFORMATION
  Report Type: Spontaneous
  Country: US (occurrence: US)
  Receive Date: 20160323
  Receipt Date: 20160506
  Transmission Date: 20160815
  Serious: Yes (Other)
  Sender: FDA-Public Use
  Company Number: US-TEVA-638234USA

PATIENT
  Age: 47 Year
  Sex: Female

DRUGS (1)
  1. ZECUITY [Suspect]
     Active Substance: SUMATRIPTAN SUCCINATE
     Indication: MIGRAINE
     Route: 062
     Dates: start: 20160222, end: 20160222

REACTIONS (8)
  - Application site burn [Unknown]
  - Device leakage [Unknown]
  - Application site pain [Recovered/Resolved]
  - Device battery issue [Unknown]
  - Dermatitis allergic [Recovered/Resolved]
  - Application site swelling [Recovered/Resolved]
  - Application site erythema [Not Recovered/Not Resolved]
  - Drug effect incomplete [Unknown]

NARRATIVE: CASE EVENT DATE: 20160222
